FAERS Safety Report 9648286 (Version 1)
Quarter: 2013Q4

REPORT INFORMATION
  Report Type: Report from Study
  Country: BE (occurrence: BE)
  Receive Date: 20131028
  Receipt Date: 20131028
  Transmission Date: 20140711
  Serious: Yes (Life-Threatening, Hospitalization)
  Sender: FDA-Public Use
  Company Number: BE-AMGEN-BELCT2013075104

PATIENT
  Age: 54 Year
  Sex: Female

DRUGS (3)
  1. ETANERCEPT [Suspect]
     Indication: RHEUMATOID ARTHRITIS
     Dosage: 25 MG, 2 TIMES/WK
     Route: 058
     Dates: start: 20020610
  2. MEDROL                             /00049601/ [Concomitant]
     Dosage: UNK
     Route: 048
     Dates: start: 1998
  3. NAPROSYNE [Concomitant]
     Dosage: UNK
     Route: 048
     Dates: start: 1999

REACTIONS (5)
  - Ureteric stenosis [Recovered/Resolved]
  - Hydronephrosis [Recovered/Resolved]
  - Condition aggravated [Recovered/Resolved]
  - Renal failure [Recovered/Resolved]
  - Urosepsis [Recovered/Resolved]
